FAERS Safety Report 5939767-X (Version None)
Quarter: 2008Q4

REPORT INFORMATION
  Report Type: 
  Country: None (occurrence: None)
  Receive Date: 20081031
  Receipt Date: 20081031
  Transmission Date: 20090506
  Serious: Yes (Disabling)
  Sender: FDA-Public Use
  Company Number: None

PATIENT
  Age: 82 Year
  Sex: Female
  Weight: 82.5547 kg

DRUGS (2)
  1. ERAXIS [Suspect]
     Indication: CANDIDURIA
     Dosage: 200 MG IV LOADING DOSE NOW IV
     Route: 042
     Dates: start: 20080925, end: 20080926
  2. ERAXIS [Suspect]
     Dosage: THEN 100 MG Q 24 HOURS IV
     Route: 042

REACTIONS (1)
  - BLOOD PRESSURE INCREASED [None]
